FAERS Safety Report 12117918 (Version 3)
Quarter: 2016Q1

REPORT INFORMATION
  Report Type: Spontaneous
  Country: IT (occurrence: IT)
  Receive Date: 20160226
  Receipt Date: 20160328
  Transmission Date: 20160526
  Serious: Yes (Hospitalization)
  Sender: FDA-Public Use
  Company Number: IT-SUN PHARMACEUTICAL INDUSTRIES LTD-2016RR-112249

PATIENT

DRUGS (2)
  1. PARACETAMOL [Suspect]
     Active Substance: ACETAMINOPHEN
     Indication: SELF INJURIOUS BEHAVIOUR
     Dosage: 3500 MG TOTAL
     Route: 048
     Dates: start: 20150602, end: 20150602
  2. BREVA [Suspect]
     Active Substance: ALBUTEROL\IPRATROPIUM
     Indication: SELF INJURIOUS BEHAVIOUR
     Dosage: 15 ML TOTAL
     Route: 048
     Dates: start: 20150602, end: 20150602

REACTIONS (4)
  - Self injurious behaviour [Unknown]
  - Drug abuse [Unknown]
  - Vomiting [Unknown]
  - Toxicity to various agents [Unknown]

NARRATIVE: CASE EVENT DATE: 20150602
